FAERS Safety Report 7900946-3 (Version None)
Quarter: 2011Q4

REPORT INFORMATION
  Report Type: 
  Country: None (occurrence: None)
  Receive Date: 20111108
  Receipt Date: 20111026
  Transmission Date: 20120403
  Serious: Yes (Other)
  Sender: FDA-Public Use
  Company Number: AU-ELI_LILLY_AND_COMPANY-AU201110007091

PATIENT
  Age: 86 Year
  Sex: Male

DRUGS (1)
  1. ZYPREXA [Suspect]
     Indication: AGITATION
     Dosage: 5 MG, UNK

REACTIONS (4)
  - PALPITATIONS [None]
  - MYOCARDIAL INFARCTION [None]
  - OFF LABEL USE [None]
  - DISORIENTATION [None]
